FAERS Safety Report 9348251 (Version 3)
Quarter: 2013Q3

REPORT INFORMATION
  Report Type: Spontaneous
  Country: US (occurrence: US)
  Receive Date: 20130614
  Receipt Date: 20130705
  Transmission Date: 20140515
  Serious: Yes (Other)
  Sender: FDA-Public Use
  Company Number: US-PFIZER INC-2013178019

PATIENT
  Age: 39 Year
  Sex: Female

DRUGS (1)
  1. LYRICA [Suspect]
     Indication: RADICULITIS LUMBOSACRAL
     Dosage: 50 MG, 2X/DAY
     Route: 048
     Dates: start: 20120711, end: 201208

REACTIONS (1)
  - Aggression [Recovered/Resolved]
